FAERS Safety Report 11100580 (Version 1)
Quarter: 2015Q2

REPORT INFORMATION
  Report Type: Spontaneous
  Country: LB (occurrence: LB)
  Receive Date: 20150508
  Receipt Date: 20150508
  Transmission Date: 20150821
  Serious: Yes (Other)
  Sender: FDA-Public Use
  Company Number: LB-ROXANE LABORATORIES, INC.-2015-RO-00768RO

PATIENT
  Sex: Male

DRUGS (5)
  1. FENTICONAZOLE NITRATE [Suspect]
     Active Substance: FENTICONAZOLE NITRATE
     Indication: TINEA VERSICOLOUR
     Route: 061
  2. FLUCONAZOLE. [Suspect]
     Active Substance: FLUCONAZOLE
     Indication: TINEA VERSICOLOUR
     Route: 048
  3. KETOCONAZOLE. [Suspect]
     Active Substance: KETOCONAZOLE
     Indication: TINEA VERSICOLOUR
     Dosage: 200 MG
     Route: 065
  4. ITRACONAZOLE. [Suspect]
     Active Substance: ITRACONAZOLE
     Indication: TINEA VERSICOLOUR
     Dosage: 200 MG
     Route: 065
  5. FLUCONAZOLE. [Suspect]
     Active Substance: FLUCONAZOLE
     Route: 048

REACTIONS (1)
  - Drug resistance [Unknown]
